FAERS Safety Report 25814130 (Version 2)
Quarter: 2025Q4

REPORT INFORMATION
  Report Type: Spontaneous
  Country: EU (occurrence: EU)
  Receive Date: 20250917
  Receipt Date: 20251008
  Transmission Date: 20260117
  Serious: Yes (Hospitalization, Other)
  Sender: SANOFI AVENTIS
  Company Number: None

PATIENT
  Age: 71 Year
  Sex: Male

DRUGS (3)
  1. LEFLUNOMIDE [Suspect]
     Active Substance: LEFLUNOMIDE
     Indication: Retroperitoneal fibrosis
     Dosage: UNK
  2. METHYLPREDNISOLONE [Suspect]
     Active Substance: METHYLPREDNISOLONE
     Indication: Retroperitoneal fibrosis
     Dosage: 48 MG, QD (THREE 16 MG TABLETS DAILY)
     Route: 048
  3. RITUXIMAB [Suspect]
     Active Substance: RITUXIMAB
     Indication: Retroperitoneal fibrosis
     Dosage: UNK

REACTIONS (6)
  - Herpes simplex necrotising retinopathy [Recovering/Resolving]
  - Uveitis [Recovering/Resolving]
  - Necrotising retinitis [Recovering/Resolving]
  - Retinal detachment [Recovering/Resolving]
  - Visual impairment [Recovering/Resolving]
  - Myositis [Unknown]
